FAERS Safety Report 5293908-9 (Version None)
Quarter: 2007Q2

REPORT INFORMATION
  Report Type: 
  Country: None (occurrence: None)
  Receive Date: 20070411
  Receipt Date: 20070405
  Transmission Date: 20071010
  Serious: Yes (Death, Life-Threatening, Other)
  Sender: FDA-Public Use
  Company Number: JP-PFIZER INC-2007026345

PATIENT
  Sex: Male

DRUGS (11)
  1. ZOLOFT [Suspect]
     Indication: DEPRESSION
     Route: 048
     Dates: start: 20070223, end: 20070323
  2. NORVASC [Concomitant]
     Route: 048
  3. SOLANAX [Concomitant]
     Route: 048
  4. GASMOTIN [Concomitant]
     Route: 048
  5. MYSLEE [Concomitant]
     Route: 048
  6. TENORMIN [Concomitant]
     Route: 048
  7. NITOROL R [Concomitant]
     Route: 048
  8. DILTIAZEM HCL [Concomitant]
     Route: 048
  9. MAGNESIUM OXIDE [Concomitant]
     Route: 048
     Dates: start: 20070219, end: 20070323
  10. PURSENNID [Concomitant]
     Route: 048
     Dates: start: 20070223, end: 20070323
  11. AMOXAN [Concomitant]
     Route: 048
     Dates: start: 20070215, end: 20070319

REACTIONS (8)
  - ANXIETY [None]
  - CENTRAL NERVOUS SYSTEM STIMULATION [None]
  - COMPLETED SUICIDE [None]
  - DEPRESSED MOOD [None]
  - FEELING OF DESPAIR [None]
  - INJURY ASPHYXIATION [None]
  - INSOMNIA [None]
  - PSYCHIATRIC SYMPTOM [None]
